FAERS Safety Report 7388180-X (Version None)
Quarter: 2011Q2

REPORT INFORMATION
  Report Type: 
  Country: None (occurrence: None)
  Receive Date: 20110401
  Receipt Date: 20110324
  Transmission Date: 20111010
  Serious: Yes (Hospitalization)
  Sender: FDA-Public Use
  Company Number: JP-ASTELLAS-2010JP007664

PATIENT
  Sex: Male
  Weight: 55 kg

DRUGS (3)
  1. RHEUMATREX [Suspect]
     Indication: RHEUMATOID ARTHRITIS
     Dosage: 8 MG, WEEKLY
     Route: 048
     Dates: start: 20050101, end: 20100312
  2. MIZORIBINE [Suspect]
     Indication: RHEUMATOID ARTHRITIS
     Dosage: 150 MG, UID/QD
     Route: 048
     Dates: start: 20090101, end: 20100312
  3. PROGRAF [Suspect]
     Indication: RHEUMATOID ARTHRITIS
     Dosage: 3 MG, UID/QD
     Route: 048
     Dates: start: 20090101, end: 20100312

REACTIONS (1)
  - ERYTHEMA INFECTIOSUM [None]
